FAERS Safety Report 7902251-8 (Version None)
Quarter: 2011Q4

REPORT INFORMATION
  Report Type: 
  Country: None (occurrence: None)
  Receive Date: 20111108
  Receipt Date: 20111026
  Transmission Date: 20120403
  Serious: Yes (Other)
  Sender: FDA-Public Use
  Company Number: IN-MYLANLABS-2011S1022426

PATIENT
  Age: 19 Year
  Sex: Female

DRUGS (1)
  1. DICLOFENAC SODIUM [Suspect]

REACTIONS (2)
  - PYLORIC STENOSIS [None]
  - DUODENAL OBSTRUCTION [None]
